FAERS Safety Report 6268360-7 (Version None)
Quarter: 2009Q3

REPORT INFORMATION
  Report Type: 
  Country: None (occurrence: None)
  Receive Date: 20090715
  Receipt Date: 20090706
  Transmission Date: 20100115
  Serious: Yes (Other)
  Sender: FDA-Public Use
  Company Number: US-JNJFOC-20090702173

PATIENT
  Sex: Female

DRUGS (4)
  1. REMICADE [Suspect]
     Route: 042
  2. REMICADE [Suspect]
     Route: 042
  3. REMICADE [Suspect]
     Indication: CROHN'S DISEASE
     Route: 042
  4. CORTICOSTEROID [Concomitant]

REACTIONS (5)
  - BLOOD PRESSURE DECREASED [None]
  - CROHN'S DISEASE [None]
  - DYSPNOEA [None]
  - LOSS OF CONSCIOUSNESS [None]
  - VOMITING [None]
